FAERS Safety Report 6890965-0 (Version None)
Quarter: 2010Q3

REPORT INFORMATION
  Report Type: 
  Country: None (occurrence: None)
  Receive Date: 20100731
  Receipt Date: 20090427
  Transmission Date: 20110219
  Serious: No
  Sender: FDA-Public Use
  Company Number: US-PFIZER INC-2009206088

PATIENT
  Sex: Female
  Weight: 68.04 kg

DRUGS (5)
  1. LIPITOR [Suspect]
     Indication: BLOOD CHOLESTEROL INCREASED
     Dosage: 10 MG, 1X/DAY
     Dates: start: 20090424
  2. SYNTHROID [Concomitant]
     Dosage: 1.12MG/DAY
  3. VALSARTAN [Concomitant]
     Dosage: 80MG/DAY
  4. ATENOLOL [Concomitant]
     Dosage: 50MG/DAY
  5. CRESTOR [Concomitant]
     Dosage: UNK

REACTIONS (1)
  - HEADACHE [None]
